FAERS Safety Report 18559574 (Version 1)
Quarter: 2020Q4

REPORT INFORMATION
  Report Type: Spontaneous
  Country: LU (occurrence: LU)
  Receive Date: 20201130
  Receipt Date: 20201130
  Transmission Date: 20210114
  Serious: Yes (Hospitalization)
  Sender: FDA-Public Use
  Company Number: LU-UCBSA-2020049013

PATIENT
  Sex: Female

DRUGS (4)
  1. BRIVARACETAM [Suspect]
     Active Substance: BRIVARACETAM
     Indication: PARTIAL SEIZURES
     Dosage: 25 MILLIGRAM, 2X/DAY (BID)-BRIVIACT
     Route: 048
     Dates: start: 202008, end: 202009
  2. BRIVARACETAM [Suspect]
     Active Substance: BRIVARACETAM
     Dosage: 25 MILLIGRAM, ONCE DAILY (QD)
     Route: 048
     Dates: start: 202009, end: 202010
  3. VIMPAT [Concomitant]
     Active Substance: LACOSAMIDE
     Indication: PRODUCT USED FOR UNKNOWN INDICATION
     Dosage: 150MG
     Route: 048
  4. ZEBINIX [Concomitant]
     Active Substance: ESLICARBAZEPINE ACETATE
     Indication: PRODUCT USED FOR UNKNOWN INDICATION
     Dosage: 800MG
     Route: 048

REACTIONS (18)
  - Fatigue [Recovered/Resolved]
  - Irritability [Recovered/Resolved]
  - Crying [Recovered/Resolved]
  - Hyperacusis [Recovered/Resolved]
  - Amimia [Recovered/Resolved]
  - Negative thoughts [Recovered/Resolved]
  - Tension headache [Recovered/Resolved]
  - Pigmentation disorder [Recovered/Resolved]
  - Formication [Recovered/Resolved]
  - Photophobia [Recovered/Resolved]
  - Underdose [Unknown]
  - Ageusia [Recovered/Resolved]
  - Product use issue [Unknown]
  - Weight decreased [Recovered/Resolved]
  - Fatigue [Recovered/Resolved]
  - Decreased appetite [Recovered/Resolved]
  - Memory impairment [Recovered/Resolved]
  - Parosmia [Recovered/Resolved]

NARRATIVE: CASE EVENT DATE: 202009
